FAERS Safety Report 11768364 (Version 1)
Quarter: 2015Q4

REPORT INFORMATION
  Report Type: Spontaneous
  Country: US (occurrence: US)
  Receive Date: 20151123
  Receipt Date: 20151123
  Transmission Date: 20160304
  Serious: No
  Sender: FDA-Public Use
  Company Number: US-CELGENEUS-USA-2015097608

PATIENT
  Sex: Female
  Weight: 90.8 kg

DRUGS (3)
  1. ALBUTEROL. [Concomitant]
     Active Substance: ALBUTEROL
     Indication: PRODUCT USED FOR UNKNOWN INDICATION
     Route: 055
  2. NOR-QD [Concomitant]
     Active Substance: NORETHINDRONE
     Indication: CONTRACEPTION
     Route: 048
  3. OTEZLA [Suspect]
     Active Substance: APREMILAST
     Indication: PSORIATIC ARTHROPATHY
     Dosage: 60 MILLIGRAM
     Route: 048
     Dates: start: 20150310

REACTIONS (3)
  - Eructation [Not Recovered/Not Resolved]
  - Weight decreased [Not Recovered/Not Resolved]
  - Dyspepsia [Not Recovered/Not Resolved]

NARRATIVE: CASE EVENT DATE: 2015
